FAERS Safety Report 18549017 (Version 1)
Quarter: 2020Q4

REPORT INFORMATION
  Report Type: Spontaneous
  Country: US (occurrence: US)
  Receive Date: 20201126
  Receipt Date: 20201126
  Transmission Date: 20210114
  Serious: No
  Sender: FDA-Public Use
  Company Number: US-GLAXOSMITHKLINE-US2020AMR230539

PATIENT
  Sex: Male

DRUGS (1)
  1. NUCALA [Suspect]
     Active Substance: MEPOLIZUMAB
     Indication: PRODUCT USED FOR UNKNOWN INDICATION
     Dosage: 100 MG, MONTHLY
     Route: 058

REACTIONS (4)
  - Influenza like illness [Unknown]
  - Headache [Unknown]
  - Bone pain [Unknown]
  - Pruritus [Unknown]

NARRATIVE: CASE EVENT DATE: 20201117
